FAERS Safety Report 7744449-8 (Version None)
Quarter: 2011Q3

REPORT INFORMATION
  Report Type: 
  Country: None (occurrence: None)
  Receive Date: 20110908
  Receipt Date: 20110825
  Transmission Date: 20111222
  Serious: Yes (Hospitalization, Other)
  Sender: FDA-Public Use
  Company Number: 2011MA000900

PATIENT
  Sex: Female
  Weight: 62.1428 kg

DRUGS (47)
  1. PREDNISONE [Concomitant]
  2. LIPITOR [Concomitant]
  3. PLAVIX [Concomitant]
  4. DIFLUCAN [Concomitant]
  5. AMITIZA [Concomitant]
  6. SPORANOX [Concomitant]
  7. MAVIK [Concomitant]
  8. METHOTREXATE [Concomitant]
  9. ZYRTEC [Concomitant]
  10. ASPIRIN [Concomitant]
  11. TETRABENAZINE [Concomitant]
  12. ALLEGRA [Concomitant]
  13. INSULIN [Concomitant]
  14. BUMEX [Concomitant]
  15. TOPROL-XL [Concomitant]
  16. NITROGLYCERIN [Concomitant]
  17. LOVENOX [Concomitant]
  18. FLUTICASONE PROPIONATE [Concomitant]
  19. PLAQUENIL [Concomitant]
  20. ULTRAM [Concomitant]
  21. RHINOCORT [Concomitant]
  22. ARAVA [Concomitant]
  23. FORTICAL [Concomitant]
  24. EVISTA [Concomitant]
  25. FOLIC ACID [Concomitant]
  26. PROCRIT [Concomitant]
  27. MUCINEX [Concomitant]
  28. COLACE [Concomitant]
  29. CITRACAL [Concomitant]
  30. ARANESP [Concomitant]
  31. ADVAIR DISKUS 100/50 [Concomitant]
  32. AMOXIL [Concomitant]
  33. PROTONIX [Concomitant]
  34. M.V.I. [Concomitant]
  35. LEVAQUIN [Concomitant]
  36. ENBREL [Concomitant]
  37. PRILOSEC [Concomitant]
  38. COREG [Concomitant]
  39. METOCLOPRAMIDE [Suspect]
     Indication: DIABETIC GASTROPARESIS
     Dosage: 10 MG;BID;PO
     Route: 048
     Dates: start: 20060720, end: 20081001
  40. ZOCOR [Concomitant]
  41. CALCIUM CARBONATE [Concomitant]
  42. NEXIUM [Concomitant]
  43. ZELNORM [Concomitant]
  44. RENAGEL [Concomitant]
  45. KLONOPIN [Concomitant]
  46. CARVEDILOL [Concomitant]
  47. RESTASIS [Concomitant]

REACTIONS (25)
  - TARDIVE DYSKINESIA [None]
  - EMOTIONAL DISTRESS [None]
  - RENAL FAILURE [None]
  - FATIGUE [None]
  - OROPHARYNGEAL PAIN [None]
  - NAUSEA [None]
  - TREATMENT NONCOMPLIANCE [None]
  - SYNCOPE [None]
  - TINNITUS [None]
  - ORTHOSTATIC HYPOTENSION [None]
  - DYSLIPIDAEMIA [None]
  - BURSITIS [None]
  - WRONG TECHNIQUE IN DRUG USAGE PROCESS [None]
  - PARKINSON'S DISEASE [None]
  - PARAESTHESIA [None]
  - DIABETES MELLITUS INADEQUATE CONTROL [None]
  - GAIT DISTURBANCE [None]
  - RHEUMATOID ARTHRITIS [None]
  - ANAEMIA [None]
  - ANGINA PECTORIS [None]
  - DIARRHOEA HAEMORRHAGIC [None]
  - CONSTIPATION [None]
  - DECREASED APPETITE [None]
  - LARYNGITIS [None]
  - HOT FLUSH [None]
